FAERS Safety Report 12190689 (Version 2)
Quarter: 2016Q2

REPORT INFORMATION
  Report Type: Report from Study
  Country: NL (occurrence: NL)
  Receive Date: 20160318
  Receipt Date: 20160411
  Transmission Date: 20160815
  Serious: Yes (Life-Threatening, Hospitalization, Other)
  Sender: FDA-Public Use
  Company Number: NL-GLAXOSMITHKLINE-NL2016GSK037416

PATIENT
  Age: 51 Year
  Sex: Female
  Weight: 55.1 kg

DRUGS (5)
  1. ZANAMIVIR [Suspect]
     Active Substance: ZANAMIVIR
     Indication: H1N1 INFLUENZA
     Dosage: 60 MG, UNK
  2. AMLODIPINE [Concomitant]
     Active Substance: AMLODIPINE BESYLATE
     Indication: HYPERTENSION
     Dosage: 5 MG, UNK
     Dates: start: 20160303
  3. METOPROLOL. [Concomitant]
     Active Substance: METOPROLOL
     Indication: HYPERTENSION
     Dosage: 25 MG, UNK
     Dates: start: 20160303
  4. TACROLIMUS. [Concomitant]
     Active Substance: TACROLIMUS
     Indication: RENAL FAILURE
     Dosage: 3 MG, BID
     Route: 048
     Dates: start: 20160129
  5. COTRIMOXAZOLE [Concomitant]
     Active Substance: SULFAMETHOXAZOLE\TRIMETHOPRIM
     Indication: PROPHYLAXIS
     Dosage: 480 MG, UNK
     Dates: start: 20160130

REACTIONS (4)
  - Electrocardiogram ST segment [Recovered/Resolved]
  - Bradycardia [Recovered/Resolved]
  - Atrioventricular block [Recovered/Resolved]
  - Troponin increased [Recovered/Resolved]

NARRATIVE: CASE EVENT DATE: 20160312
